FAERS Safety Report 8553168-X (Version None)
Quarter: 2012Q3

REPORT INFORMATION
  Report Type: 
  Country: None (occurrence: None)
  Receive Date: 20120731
  Receipt Date: 20120723
  Transmission Date: 20120928
  Serious: Yes (Other)
  Sender: FDA-Public Use
  Company Number: JP-PFIZER INC-2012181495

PATIENT
  Age: 66 Year
  Sex: Female
  Weight: 47 kg

DRUGS (1)
  1. ZOSYN [Suspect]
     Indication: PYREXIA
     Dosage: 4.5 G, 3X/DAY
     Route: 041
     Dates: start: 20120707, end: 20120707

REACTIONS (4)
  - RHINORRHOEA [None]
  - OROPHARYNGEAL DISCOMFORT [None]
  - NASAL CONGESTION [None]
  - OCULAR HYPERAEMIA [None]
